FAERS Safety Report 8307653-6 (Version None)
Quarter: 2012Q2

REPORT INFORMATION
  Report Type: 
  Country: None (occurrence: None)
  Receive Date: 20120424
  Receipt Date: 20120417
  Transmission Date: 20120825
  Serious: Yes (Hospitalization)
  Sender: FDA-Public Use
  Company Number: US-CELGENEUS-163-20785-12041876

PATIENT
  Sex: Female
  Weight: 48 kg

DRUGS (10)
  1. THALOMID [Suspect]
     Dosage: 100 MILLIGRAM
     Route: 048
     Dates: start: 20110601
  2. MORPHINE [Concomitant]
     Route: 065
  3. LEXAPRO [Concomitant]
     Route: 065
  4. DEXAMETHASONE [Concomitant]
     Route: 065
  5. THALOMID [Suspect]
     Dosage: 50 MILLIGRAM
     Route: 048
     Dates: start: 20120406
  6. OXYCODONE HCL [Concomitant]
     Route: 065
  7. THALOMID [Suspect]
     Indication: MULTIPLE MYELOMA
     Dosage: 50 MILLIGRAM
     Route: 048
     Dates: start: 20110601
  8. OMEPRAZOLE [Concomitant]
     Route: 065
  9. ZOFRAN [Concomitant]
     Route: 065
  10. MULTI-VITAMIN [Concomitant]
     Route: 065

REACTIONS (7)
  - DECREASED APPETITE [None]
  - CONSTIPATION [None]
  - NEUTROPENIA [None]
  - ANAEMIA [None]
  - FATIGUE [None]
  - RENAL DISORDER [None]
  - WEIGHT DECREASED [None]
